FAERS Safety Report 9059134 (Version 1)
Quarter: 2013Q1

REPORT INFORMATION
  Report Type: Spontaneous
  Country: US (occurrence: US)
  Receive Date: 20130211
  Receipt Date: 20130211
  Transmission Date: 20140127
  Serious: No
  Sender: FDA-Public Use
  Company Number: US-BRISTOL-MYERS SQUIBB COMPANY-16998627

PATIENT
  Age: 60 Year
  Sex: Male
  Weight: 89.34 kg

DRUGS (6)
  1. GLUCOPHAGE [Suspect]
     Indication: DIABETES MELLITUS
     Dosage: 2-3YRS AGO:500MG,2TABS TWICE DAILY.
     Route: 048
  2. ACTOS [Concomitant]
  3. ALTACE [Concomitant]
  4. LIPITOR [Concomitant]
  5. COREG [Concomitant]
  6. VICTOZA [Suspect]

REACTIONS (1)
  - Blood glucose increased [Unknown]
